FAERS Safety Report 25386815 (Version 1)
Quarter: 2025Q2

REPORT INFORMATION
  Report Type: Spontaneous
  Country: US (occurrence: US)
  Receive Date: 20250602
  Receipt Date: 20250602
  Transmission Date: 20250717
  Serious: Yes (Hospitalization)
  Sender: BRISTOL-MYERS SQUIBB COMPANY
  Company Number: US-BRISTOL-MYERS SQUIBB COMPANY-2025-077357

PATIENT
  Age: 81 Year
  Sex: Male
  Weight: 86.1 kg

DRUGS (1)
  1. REVLIMID [Suspect]
     Active Substance: LENALIDOMIDE
     Indication: Mantle cell lymphoma
     Route: 048
     Dates: start: 20240604

REACTIONS (4)
  - Cardiac disorder [Unknown]
  - Blood potassium decreased [Unknown]
  - Thyroid disorder [Unknown]
  - Skin disorder [Unknown]

NARRATIVE: CASE EVENT DATE: 20250524
